FAERS Safety Report 4568304-X (Version None)
Quarter: 2005Q1

REPORT INFORMATION
  Report Type: 
  Country: None (occurrence: None)
  Receive Date: 20050202
  Receipt Date: 20000405
  Transmission Date: 20050727
  Serious: Yes (Hospitalization)
  Sender: FDA-Public Use
  Company Number: TH-GLAXOSMITHKLINE-B0369332A

PATIENT
  Age: 59 Year
  Sex: Male
  Weight: 63 kg

DRUGS (5)
  1. ZIAGENAVIR [Suspect]
     Indication: ACQUIRED IMMUNODEFICIENCY SYNDROME
     Dosage: 300MG TWICE PER DAY
     Route: 065
     Dates: start: 20000212, end: 20000320
  2. COMBID [Concomitant]
     Indication: ACQUIRED IMMUNODEFICIENCY SYNDROME
     Route: 048
     Dates: start: 20000212, end: 20000320
  3. STOCRIN [Concomitant]
     Indication: ACQUIRED IMMUNODEFICIENCY SYNDROME
     Route: 048
     Dates: start: 20000212, end: 20000320
  4. FLUCONAZOLE [Concomitant]
     Indication: INFECTION
     Route: 048
  5. COTRIM [Concomitant]
     Indication: INFECTION
     Route: 048

REACTIONS (3)
  - COUGH [None]
  - PYREXIA [None]
  - RHINORRHOEA [None]
